FAERS Safety Report 6776665-6 (Version None)
Quarter: 2010Q2

REPORT INFORMATION
  Report Type: 
  Country: None (occurrence: None)
  Receive Date: 20100617
  Receipt Date: 20100617
  Transmission Date: 20101027
  Serious: Yes (Hospitalization)
  Sender: FDA-Public Use
  Company Number: None

PATIENT
  Sex: Male
  Weight: 97.3 kg

DRUGS (2)
  1. CISPLATIN [Suspect]
     Dosage: 55.8 MG
     Dates: end: 20100608
  2. TAXOL [Suspect]
     Dosage: 112 MG
     Dates: end: 20100608

REACTIONS (5)
  - BODY TEMPERATURE INCREASED [None]
  - ERYTHEMA [None]
  - EXCORIATION [None]
  - HYPOVOLAEMIA [None]
  - PURULENCE [None]
